FAERS Safety Report 16306166 (Version 4)
Quarter: 2019Q2

REPORT INFORMATION
  Report Type: Report from Study
  Country: US (occurrence: US)
  Receive Date: 20190513
  Receipt Date: 20190625
  Transmission Date: 20190711
  Serious: Yes (Other)
  Sender: FDA-Public Use
  Company Number: US-TESARO-2019-TSO01665-US

PATIENT
  Age: 83 Year
  Sex: Female

DRUGS (4)
  1. ZEJULA [Suspect]
     Active Substance: NIRAPARIB
     Indication: OVARIAN CANCER
     Dosage: 200 MG, QPM WITH FOOD
     Route: 048
     Dates: start: 20190417
  2. ZEJULA [Suspect]
     Active Substance: NIRAPARIB
     Dosage: 100 MG, QPM WITH FOOD
     Route: 048
  3. ZEJULA [Suspect]
     Active Substance: NIRAPARIB
     Dosage: 100 MG, QD
     Route: 048
     Dates: start: 20190429
  4. ZEJULA [Suspect]
     Active Substance: NIRAPARIB
     Dosage: 200 MG, DAILY
     Route: 048

REACTIONS (18)
  - Cognitive disorder [Not Recovered/Not Resolved]
  - Asthenia [Unknown]
  - Laboratory test abnormal [Unknown]
  - Tremor [Unknown]
  - Decreased appetite [Unknown]
  - Neuropathy peripheral [Not Recovered/Not Resolved]
  - Contusion [Unknown]
  - Constipation [Unknown]
  - Feeling abnormal [Not Recovered/Not Resolved]
  - Renal function test abnormal [Unknown]
  - Arthritis [Unknown]
  - Headache [Unknown]
  - Thirst [Not Recovered/Not Resolved]
  - Emotional disorder [Unknown]
  - Fatigue [Not Recovered/Not Resolved]
  - Feeling of body temperature change [Unknown]
  - Nausea [Not Recovered/Not Resolved]
  - Insomnia [Unknown]

NARRATIVE: CASE EVENT DATE: 201904
